FAERS Safety Report 8359198-5 (Version None)
Quarter: 2012Q2

REPORT INFORMATION
  Report Type: 
  Country: None (occurrence: None)
  Receive Date: 20120514
  Receipt Date: 20120514
  Transmission Date: 20120825
  Serious: Yes (Other)
  Sender: FDA-Public Use
  Company Number: None

PATIENT
  Age: 11 Year
  Sex: Male
  Weight: 35.3806 kg

DRUGS (1)
  1. FLOVENT [Suspect]
     Indication: ASTHMA
     Dosage: ONE INHALATION TWICE DAILY
     Route: 055
     Dates: start: 20100101, end: 20120510

REACTIONS (6)
  - ABNORMAL BEHAVIOUR [None]
  - ABNORMAL SLEEP-RELATED EVENT [None]
  - SOMNAMBULISM [None]
  - ABDOMINAL DISCOMFORT [None]
  - VOMITING [None]
  - SLEEP TERROR [None]
